FAERS Safety Report 20734335 (Version 1)
Quarter: 2022Q2

REPORT INFORMATION
  Report Type: Spontaneous
  Country: US (occurrence: None)
  Receive Date: 20220420
  Receipt Date: 20220420
  Transmission Date: 20220720
  Serious: Yes (Hospitalization)
  Sender: FDA-Public Use
  Company Number: None

PATIENT
  Age: 22 Year
  Weight: 81.3 kg

DRUGS (1)
  1. SOTROVIMAB [Suspect]
     Active Substance: SOTROVIMAB
     Indication: COVID-19
     Dosage: OTHER FREQUENCY : X1 DOSE;?
     Route: 042
     Dates: start: 20220119, end: 20220119

REACTIONS (19)
  - Maternal exposure during pregnancy [None]
  - Lethargy [None]
  - Fatigue [None]
  - Heart rate increased [None]
  - Blood pressure decreased [None]
  - Haemoglobin decreased [None]
  - Haematocrit decreased [None]
  - PCO2 decreased [None]
  - Blood calcium decreased [None]
  - Blood urea decreased [None]
  - Blood albumin decreased [None]
  - Protein total decreased [None]
  - Protein urine present [None]
  - Urine ketone body present [None]
  - Urine leukocyte esterase positive [None]
  - Bacterial test positive [None]
  - White blood cells urine positive [None]
  - Urine analysis abnormal [None]
  - Infusion related reaction [None]

NARRATIVE: CASE EVENT DATE: 20220119
